FAERS Safety Report 6119698-5 (Version None)
Quarter: 2009Q1

REPORT INFORMATION
  Report Type: 
  Country: None (occurrence: None)
  Receive Date: 20090316
  Receipt Date: 20081203
  Transmission Date: 20090719
  Serious: Yes (Other)
  Sender: FDA-Public Use
  Company Number: US-PFIZER INC-2008158217

PATIENT
  Sex: Female
  Weight: 59.864 kg

DRUGS (1)
  1. CHANTIX [Suspect]
     Indication: SMOKING CESSATION THERAPY
     Dosage: 1 MG, 2X/DAY
     Dates: start: 20081120

REACTIONS (5)
  - DIZZINESS [None]
  - DYSARTHRIA [None]
  - FEELING DRUNK [None]
  - LOSS OF CONSCIOUSNESS [None]
  - NERVOUSNESS [None]
